FAERS Safety Report 8480299-5 (Version None)
Quarter: 2012Q2

REPORT INFORMATION
  Report Type: 
  Country: None (occurrence: None)
  Receive Date: 20120629
  Receipt Date: 20120625
  Transmission Date: 20120825
  Serious: Yes (Life-Threatening, Hospitalization, Other)
  Sender: FDA-Public Use
  Company Number: US-ASTRAZENECA-2012SE42643

PATIENT
  Age: 46 Year
  Sex: Female
  Weight: 180 kg

DRUGS (27)
  1. SAVELLA [Suspect]
     Indication: FIBROMYALGIA
     Route: 048
     Dates: start: 20110907, end: 20110907
  2. SAVELLA [Suspect]
     Route: 048
     Dates: start: 20110908, end: 20110909
  3. ALLOPURINOL [Concomitant]
  4. PROPRANOLOL [Concomitant]
  5. AMITRIPTYLINE HCL [Concomitant]
  6. AMOXICILLIN [Concomitant]
  7. POTASSIUM ACETATE [Concomitant]
  8. METFORMIN HCL [Concomitant]
  9. MULTI-VITAMIN [Concomitant]
  10. SAVELLA [Suspect]
     Route: 048
     Dates: start: 20110910, end: 20110912
  11. CRANBERRY [Concomitant]
  12. SYNTHROID [Concomitant]
  13. LISINOPRIL [Concomitant]
  14. OXYBUTYNIN [Concomitant]
  15. VICODIN [Concomitant]
     Dosage: 1 TABLET EVERY 6 HOURS AS NEEDED
     Route: 048
     Dates: start: 20110907
  16. PRILOSEC [Suspect]
     Route: 048
     Dates: start: 20110601
  17. TORSEMIDE [Suspect]
     Route: 065
     Dates: start: 20110713
  18. ADIPEX-P [Concomitant]
     Route: 048
  19. GLIMEPIRIDE [Concomitant]
     Route: 048
     Dates: start: 20110907
  20. CRESTOR [Suspect]
     Route: 048
     Dates: start: 20110601
  21. IBUPROFEN [Suspect]
     Route: 065
     Dates: start: 20110601
  22. WARFARIN SODIUM [Concomitant]
  23. VITAMIN D [Concomitant]
  24. LOVAZA [Suspect]
     Route: 048
     Dates: start: 20110907
  25. CINNAMON [Concomitant]
  26. FENOFIBRATE [Concomitant]
  27. WELLBUTRIN [Concomitant]

REACTIONS (4)
  - DIARRHOEA [None]
  - ANAPHYLACTIC SHOCK [None]
  - DERMATITIS EXFOLIATIVE [None]
  - ADVERSE DRUG REACTION [None]
